FAERS Safety Report 5928899-8 (Version None)
Quarter: 2008Q3

REPORT INFORMATION
  Report Type: 
  Country: None (occurrence: None)
  Receive Date: 20080924
  Receipt Date: 20080721
  Transmission Date: 20090109
  Serious: Yes (Other)
  Sender: FDA-Public Use
  Company Number: CTI_00979_2008

PATIENT
  Sex: Female
  Weight: 58.0604 kg

DRUGS (4)
  1. ZYFLO CR [Suspect]
     Indication: ASTHMA
     Dosage: (600 MG BID ORAL)
     Route: 048
     Dates: start: 20080519
  2. ADVAIR /01367401/ [Concomitant]
  3. ALLEGRA-D [Concomitant]
  4. INEXIUM /01479302/ [Concomitant]

REACTIONS (1)
  - ALANINE AMINOTRANSFERASE INCREASED [None]
